FAERS Safety Report 9883617 (Version 1)
Quarter: 2014Q1

REPORT INFORMATION
  Report Type: Spontaneous
  Country: US (occurrence: US)
  Receive Date: 20140210
  Receipt Date: 20140210
  Transmission Date: 20141002
  Serious: Yes (Death)
  Sender: FDA-Public Use
  Company Number: US-ROCHE-1347106

PATIENT
  Age: 76 Year
  Sex: Male

DRUGS (2)
  1. XELODA [Suspect]
     Indication: COLON CANCER
     Route: 048
     Dates: start: 20140104, end: 20140128
  2. XELODA [Suspect]
     Indication: METASTASES TO LYMPH NODES

REACTIONS (1)
  - Death [Fatal]
